FAERS Safety Report 7313610-9 (Version None)
Quarter: 2011Q1

REPORT INFORMATION
  Report Type: 
  Country: None (occurrence: None)
  Receive Date: 20110225
  Receipt Date: 20110217
  Transmission Date: 20110831
  Serious: Yes (Other)
  Sender: FDA-Public Use
  Company Number: US-PERRIGO-11US001416

PATIENT
  Age: 26 Year
  Sex: Female

DRUGS (2)
  1. SINUS SHOTS [Concomitant]
     Indication: SINUSITIS
     Dosage: UNK, MONTHLY
     Route: 023
  2. IBUPROFEN AND DIPHENHYDRAMINE [Suspect]
     Indication: EAR PAIN
     Dosage: 2 TABLETS, SINGLE
     Route: 048
     Dates: start: 20110216, end: 20110216

REACTIONS (12)
  - SKIN TIGHTNESS [None]
  - THROAT TIGHTNESS [None]
  - ERYTHEMA [None]
  - SWELLING FACE [None]
  - RHINORRHOEA [None]
  - NASAL CONGESTION [None]
  - DYSPNOEA [None]
  - HYPERSENSITIVITY [None]
  - URTICARIA [None]
  - ASTHMA [None]
  - WHEEZING [None]
  - COUGH [None]
